FAERS Safety Report 16844283 (Version 1)
Quarter: 2019Q4

REPORT INFORMATION
  Report Type: Spontaneous
  Country: US (occurrence: US)
  Receive Date: 20190923
  Receipt Date: 20190923
  Transmission Date: 20200122
  Serious: No
  Sender: FDA-Public Use
  Company Number: None

PATIENT
  Age: 61 Year
  Sex: Female
  Weight: 54 kg

DRUGS (9)
  1. RECLAST [Suspect]
     Active Substance: ZOLEDRONIC ACID
     Indication: OSTEOPENIA
     Dosage: ?          QUANTITY:1 INJECTION(S);OTHER FREQUENCY:ANNUALLY;?
     Route: 042
     Dates: start: 20190918, end: 20190918
  2. SYNTHROID [Concomitant]
     Active Substance: LEVOTHYROXINE SODIUM
  3. RECLAST [Concomitant]
     Active Substance: ZOLEDRONIC ACID
  4. CHROMIUM [Concomitant]
     Active Substance: CHROMIC CHLORIDE\CHROMIUM
  5. CRESTOR [Concomitant]
     Active Substance: ROSUVASTATIN CALCIUM
  6. MELATONIN [Concomitant]
     Active Substance: MELATONIN
  7. ALDACTONE [Concomitant]
     Active Substance: SPIRONOLACTONE
  8. CALCIUM AND VIT D [Concomitant]
     Active Substance: CALCIUM\VITAMIN D
  9. TYLENOL [Concomitant]
     Active Substance: ACETAMINOPHEN

REACTIONS (2)
  - Iritis [None]
  - Infusion related reaction [None]

NARRATIVE: CASE EVENT DATE: 20190922
